FAERS Safety Report 8258545-2 (Version None)
Quarter: 2012Q1

REPORT INFORMATION
  Report Type: 
  Country: None (occurrence: None)
  Receive Date: 20120322
  Receipt Date: 20120104
  Transmission Date: 20120608
  Serious: Yes (Hospitalization)
  Sender: FDA-Public Use
  Company Number: UTC-014200

PATIENT
  Age: 81 Year
  Sex: Female
  Weight: 68.2 kg

DRUGS (1)
  1. TYVASO [Suspect]
     Indication: HYPERTENSION
     Dosage: 162 MCG (54 MCG, 3 IN 1 D),INHALATION
     Route: 055
     Dates: start: 20111119

REACTIONS (1)
  - BLOOD DISORDER [None]
